FAERS Safety Report 18933298 (Version 12)
Quarter: 2022Q3

REPORT INFORMATION
  Report Type: Report from Study
  Country: AU (occurrence: AU)
  Receive Date: 20210224
  Receipt Date: 20220817
  Transmission Date: 20221026
  Serious: Yes (Other)
  Sender: FDA-Public Use
  Company Number: NVSC2021AU039597

PATIENT
  Age: 61 Year
  Sex: Male
  Weight: 75.8 kg

DRUGS (54)
  1. TISAGENLECLEUCEL [Suspect]
     Active Substance: TISAGENLECLEUCEL
     Indication: B-cell lymphoma
     Dosage: 3.1044 X10E8 CELLS
     Route: 042
     Dates: start: 20201201
  2. MESNA [Suspect]
     Active Substance: MESNA
     Indication: Non-Hodgkin^s lymphoma
     Dosage: 9840 MG, Q24H
     Route: 065
     Dates: start: 20201028
  3. RITUXIMAB [Suspect]
     Active Substance: RITUXIMAB
     Indication: B-cell lymphoma
     Dosage: 725 MG, ONCE
     Route: 042
     Dates: start: 20201001
  4. CISPLATIN [Suspect]
     Active Substance: CISPLATIN
     Indication: B-cell lymphoma
     Dosage: 145 MG, ONCE
     Route: 042
     Dates: start: 20201002
  5. GEMCITABINE [Suspect]
     Active Substance: GEMCITABINE
     Indication: B-cell lymphoma
     Dosage: 1938 MG, ONCE
     Route: 042
     Dates: start: 20201002
  6. DEXAMETHASONE [Suspect]
     Active Substance: DEXAMETHASONE
     Indication: B-cell lymphoma
     Dosage: 40 MG, ONCE
     Route: 048
     Dates: start: 20201001
  7. ETOPOSIDE [Suspect]
     Active Substance: ETOPOSIDE
     Indication: B-cell lymphoma
     Dosage: 200 MG, ONCE
     Route: 042
     Dates: start: 20201027
  8. CARBOPLATIN [Suspect]
     Active Substance: CARBOPLATIN
     Indication: B-cell lymphoma
     Dosage: 700 MG, ONCE
     Route: 042
     Dates: start: 20201028
  9. IFOSFAMIDE [Suspect]
     Active Substance: IFOSFAMIDE
     Indication: B-cell lymphoma
     Dosage: 3280 MG, ONCE
     Route: 042
     Dates: start: 20201028
  10. TOCILIZUMAB [Suspect]
     Active Substance: TOCILIZUMAB
     Indication: B-cell lymphoma
     Dosage: 8 MG/KG
     Route: 042
     Dates: start: 20201204
  11. MOVICOL [Concomitant]
     Active Substance: POLYETHYLENE GLYCOL 3350\POTASSIUM CHLORIDE\SODIUM BICARBONATE\SODIUM CHLORIDE
     Indication: Prophylaxis
     Dosage: UNK
     Route: 065
     Dates: start: 20201028
  12. VALACYCLOVIR HYDROCHLORIDE [Concomitant]
     Active Substance: VALACYCLOVIR HYDROCHLORIDE
     Indication: Antiviral prophylaxis
     Dosage: UNK
     Route: 065
     Dates: start: 20200301
  13. METOCLOPRAMIDE [Concomitant]
     Active Substance: METOCLOPRAMIDE
     Indication: Nausea
     Dosage: UNK
     Route: 065
     Dates: start: 20210130, end: 20210212
  14. PANTOPRAZOLE [Concomitant]
     Active Substance: PANTOPRAZOLE
     Indication: Prophylaxis
     Dosage: UNK
     Route: 065
     Dates: start: 20200928, end: 20210329
  15. OXYCODONE [Concomitant]
     Active Substance: OXYCODONE
     Indication: Pain
     Dosage: UNK
     Route: 065
     Dates: start: 20200301, end: 20210410
  16. OXYCODONE [Concomitant]
     Active Substance: OXYCODONE
     Indication: Stomatitis
     Dosage: UNK
     Route: 065
     Dates: start: 20200303, end: 20210410
  17. OXYCODONE [Concomitant]
     Active Substance: OXYCODONE
     Dosage: UNK
     Route: 065
     Dates: start: 20210130, end: 20210131
  18. OXYCODONE [Concomitant]
     Active Substance: OXYCODONE
     Dosage: UNK
     Route: 065
     Dates: start: 20210206, end: 20210210
  19. ACETAMINOPHEN [Concomitant]
     Active Substance: ACETAMINOPHEN
     Indication: Pain
     Dosage: UNK
     Route: 065
     Dates: start: 20201130, end: 20210410
  20. ACETAMINOPHEN [Concomitant]
     Active Substance: ACETAMINOPHEN
     Indication: Stomatitis
     Dosage: UNK
     Route: 065
     Dates: start: 20210129
  21. ACETAMINOPHEN [Concomitant]
     Active Substance: ACETAMINOPHEN
     Indication: Analgesic therapy
     Dosage: UNK
     Route: 065
     Dates: start: 20210129, end: 20210131
  22. POSACONAZOLE [Concomitant]
     Active Substance: POSACONAZOLE
     Indication: Prophylaxis
     Dosage: UNK
     Route: 065
     Dates: start: 20201215, end: 20210413
  23. ONDANSETRON [Concomitant]
     Active Substance: ONDANSETRON
     Indication: Nausea
     Dosage: UNK
     Route: 065
     Dates: start: 20201008, end: 20210410
  24. ATOVAQUONE [Concomitant]
     Active Substance: ATOVAQUONE
     Indication: Pneumocystis jirovecii pneumonia
     Dosage: UNK
     Route: 065
     Dates: start: 20201203
  25. COCAINE [Concomitant]
     Active Substance: COCAINE
     Indication: Stomatitis
     Dosage: UNK
     Route: 065
     Dates: start: 20210129, end: 20210311
  26. COCAINE [Concomitant]
     Active Substance: COCAINE
     Dosage: UNK
     Route: 065
     Dates: start: 20210206, end: 20210208
  27. CALCIUM CHLORIDE\POTASSIUM CHLORIDE\SODIUM CHLORIDE\SODIUM LACTATE [Concomitant]
     Active Substance: CALCIUM CHLORIDE\POTASSIUM CHLORIDE\SODIUM CHLORIDE\SODIUM LACTATE
     Indication: Stomatitis
     Dosage: UNK
     Route: 065
     Dates: start: 20210129, end: 20210129
  28. DOCUSATE [Concomitant]
     Active Substance: DOCUSATE
     Indication: Prophylaxis
     Dosage: UNK
     Route: 065
     Dates: start: 20201028
  29. LORATADINE [Concomitant]
     Active Substance: LORATADINE
     Indication: Hypersensitivity
     Dosage: UNK
     Route: 065
     Dates: start: 20201027, end: 20210305
  30. FLUDARABINE [Concomitant]
     Active Substance: FLUDARABINE PHOSPHATE
     Indication: Chemotherapy
     Dosage: 47.5 MG, ONCE
     Route: 065
     Dates: start: 20201125, end: 20201125
  31. FLUDARABINE [Concomitant]
     Active Substance: FLUDARABINE PHOSPHATE
     Dosage: 47.5 MG, ONCE
     Route: 065
     Dates: start: 20201126, end: 20201126
  32. FLUDARABINE [Concomitant]
     Active Substance: FLUDARABINE PHOSPHATE
     Dosage: 47.5 MG, ONCE
     Route: 065
     Dates: start: 20201127, end: 20201127
  33. FENTANYL [Concomitant]
     Active Substance: FENTANYL
     Indication: Pain
     Dosage: UNK
     Route: 065
     Dates: start: 20210129, end: 20210129
  34. FILGRASTIM [Concomitant]
     Active Substance: FILGRASTIM
     Indication: Neutropenia
     Dosage: UNK
     Route: 065
     Dates: start: 20210130, end: 20210130
  35. FILGRASTIM [Concomitant]
     Active Substance: FILGRASTIM
     Indication: Neutrophil count decreased
     Dosage: UNK
     Route: 065
     Dates: start: 20210207, end: 20210210
  36. FILGRASTIM [Concomitant]
     Active Substance: FILGRASTIM
     Dosage: UNK
     Route: 065
     Dates: start: 20210206, end: 20210206
  37. FILGRASTIM [Concomitant]
     Active Substance: FILGRASTIM
     Dosage: UNK
     Route: 065
     Dates: start: 20210207, end: 20210326
  38. LIDOCAINE HYDROCHLORIDE [Concomitant]
     Active Substance: LIDOCAINE HYDROCHLORIDE
     Indication: Stomatitis
     Dosage: UNK
     Route: 065
     Dates: start: 20210129, end: 20210130
  39. LIDOCAINE HYDROCHLORIDE [Concomitant]
     Active Substance: LIDOCAINE HYDROCHLORIDE
     Dosage: UNK
     Route: 065
     Dates: start: 20210207, end: 20210209
  40. METHOXYFLURANE [Concomitant]
     Active Substance: METHOXYFLURANE
     Indication: Pain
     Dosage: UNK
     Route: 065
     Dates: start: 20210209, end: 20210209
  41. SODIUM CHLORIDE [Concomitant]
     Active Substance: SODIUM CHLORIDE
     Indication: Stomatitis
     Dosage: UNK
     Route: 065
     Dates: start: 20210129, end: 20210130
  42. SODIUM CHLORIDE [Concomitant]
     Active Substance: SODIUM CHLORIDE
     Dosage: UNK
     Route: 065
     Dates: start: 20210206, end: 20210207
  43. MORPHINE [Concomitant]
     Active Substance: MORPHINE
     Indication: Pain
     Dosage: UNK
     Route: 065
     Dates: start: 20210129, end: 20210130
  44. NALOXONE HYDROCHLORIDE\OXYCODONE HYDROCHLORIDE [Concomitant]
     Active Substance: NALOXONE HYDROCHLORIDE\OXYCODONE HYDROCHLORIDE
     Indication: Pain
     Dosage: UNK
     Route: 065
     Dates: start: 20210129, end: 20210311
  45. METHYL SALICYLATE\PEPPERMINT OIL\SODIUM BICARBONATE\SODIUM CHLORIDE [Concomitant]
     Active Substance: METHYL SALICYLATE\PEPPERMINT OIL\SODIUM BICARBONATE\SODIUM CHLORIDE
     Indication: Mucosal inflammation
     Dosage: UNK
     Route: 065
     Dates: start: 20210129
  46. PIPERACILLIN SODIUM\TAZOBACTAM SODIUM [Concomitant]
     Active Substance: PIPERACILLIN SODIUM\TAZOBACTAM SODIUM
     Indication: Sepsis
     Dosage: UNK
     Route: 065
     Dates: start: 20210131, end: 20210131
  47. POTASSIUM [Concomitant]
     Active Substance: POTASSIUM
     Indication: Hypokalaemia
     Dosage: UNK
     Route: 065
     Dates: start: 20210206, end: 20210207
  48. POTASSIUM [Concomitant]
     Active Substance: POTASSIUM
     Dosage: UNK
     Route: 065
     Dates: start: 20210207, end: 20210207
  49. TEMAZEPAM [Concomitant]
     Active Substance: TEMAZEPAM
     Indication: Sleep disorder
     Dosage: UNK
     Route: 065
     Dates: start: 20210130, end: 20210131
  50. THIAMINE [Concomitant]
     Active Substance: THIAMINE
     Indication: Vitamin supplementation
     Dosage: UNK
     Route: 065
     Dates: start: 20210207, end: 20210209
  51. CYCLOPHOSPHAMIDE [Concomitant]
     Active Substance: CYCLOPHOSPHAMIDE
     Indication: Chemotherapy
     Dosage: 480 MG, ONCE
     Route: 065
     Dates: start: 20201125, end: 20201125
  52. CYCLOPHOSPHAMIDE [Concomitant]
     Active Substance: CYCLOPHOSPHAMIDE
     Dosage: 480 MG, ONCE
     Route: 065
     Dates: start: 20201126, end: 20201126
  53. CYCLOPHOSPHAMIDE [Concomitant]
     Active Substance: CYCLOPHOSPHAMIDE
     Dosage: 480 MG, ONCE
     Route: 065
     Dates: start: 20201127, end: 20201127
  54. LENALIDOMIDE [Concomitant]
     Active Substance: LENALIDOMIDE
     Indication: Product used for unknown indication
     Dosage: UNK
     Route: 065
     Dates: start: 20210402

REACTIONS (1)
  - Bone marrow failure [Not Recovered/Not Resolved]

NARRATIVE: CASE EVENT DATE: 20210209
